FAERS Safety Report 4612420-0 (Version None)
Quarter: 2005Q1

REPORT INFORMATION
  Report Type: 
  Country: None (occurrence: None)
  Receive Date: 20050316
  Receipt Date: 20050224
  Transmission Date: 20050727
  Serious: Yes (Life-Threatening, Hospitalization, Other)
  Sender: FDA-Public Use
  Company Number: US_0501109973

PATIENT
  Age: 73 Year
  Sex: Male

DRUGS (3)
  1. PREMAX (PERGOLIDE MESYLATE) [Suspect]
     Indication: PARKINSON'S DISEASE
     Dosage: 1.5 MG/3 DAY
     Dates: start: 19991201, end: 20040701
  2. SINEMET [Concomitant]
  3. DYAZIDE [Concomitant]

REACTIONS (3)
  - RENAL FAILURE [None]
  - RETROPERITONEAL FIBROSIS [None]
  - URETHRAL OBSTRUCTION [None]
